FAERS Safety Report 8079569-4 (Version None)
Quarter: 2012Q1

REPORT INFORMATION
  Report Type: 
  Country: None (occurrence: None)
  Receive Date: 20120128
  Receipt Date: 20110809
  Transmission Date: 20120608
  Serious: No
  Sender: FDA-Public Use
  Company Number: US-ABBOTT-11P-163-0850246-00

PATIENT
  Sex: Female
  Weight: 47.67 kg

DRUGS (2)
  1. PREDNISONE TAB [Suspect]
     Indication: PRODUCT USED FOR UNKNOWN INDICATION
  2. HUMIRA [Suspect]
     Indication: ANKYLOSING SPONDYLITIS
     Dates: start: 20110301, end: 20110701

REACTIONS (3)
  - ERYTHEMA [None]
  - RASH PUSTULAR [None]
  - PLATELET COUNT DECREASED [None]
